FAERS Safety Report 4366702-0 (Version None)
Quarter: 2004Q2

REPORT INFORMATION
  Report Type: 
  Country: None (occurrence: None)
  Receive Date: 20040527
  Receipt Date: 20040220
  Transmission Date: 20050107
  Serious: Yes (Hospitalization, Other)
  Sender: FDA-Public Use
  Company Number: 2004S1000529

PATIENT
  Age: 85 Year
  Sex: Male

DRUGS (4)
  1. DILTIAZEM [Suspect]
     Dosage: 120MG QD ORAL
     Route: 048
     Dates: end: 20040220
  2. MULTI-VITAMIN [Concomitant]
  3. ASPIRIN [Concomitant]
  4. PRAVASTATIN [Concomitant]

REACTIONS (7)
  - CARDIAC ARREST [None]
  - CHEST PAIN [None]
  - DYSPEPSIA [None]
  - FLATULENCE [None]
  - STENT PLACEMENT [None]
  - STOOL ANALYSIS ABNORMAL [None]
  - VASCULAR OCCLUSION [None]
